FAERS Safety Report 5027546-X (Version None)
Quarter: 2006Q2

REPORT INFORMATION
  Report Type: 
  Country: None (occurrence: None)
  Receive Date: 20060616
  Receipt Date: 20060608
  Transmission Date: 20061013
  Serious: Yes (Other)
  Sender: FDA-Public Use
  Company Number: US-SOLVAY-00206001959

PATIENT
  Age: 18628 Day
  Sex: Male

DRUGS (8)
  1. ALTACE [Concomitant]
     Indication: HYPERTENSION
     Dosage: DAILY DOSE: 5 MILLIGRAM(S)
     Route: 048
     Dates: start: 20030101
  2. ANDROGEL [Suspect]
     Indication: DIABETES MELLITUS
     Dosage: DAILY DOSE: 15 GRAM(S)
     Route: 062
     Dates: start: 20060119, end: 20060516
  3. ZOCOR [Concomitant]
     Indication: HYPERTENSION
     Dosage: DAILY DOSE: 20 MILLIGRAM(S)
     Route: 048
     Dates: start: 20030101
  4. ACTOS [Concomitant]
     Indication: DIABETES MELLITUS
     Dosage: DAILY DOSE: 30 MILLIGRAM(S)
     Route: 048
     Dates: start: 20030101, end: 20060403
  5. ACTOS [Concomitant]
     Dosage: DAILY DOSE: 45 MILLIGRAM(S)
     Route: 048
     Dates: start: 20060404
  6. GLIPIZIDE [Concomitant]
     Indication: DIABETES MELLITUS
     Dosage: DAILY DOSE: 20 MILLIGRAM(S)
     Route: 048
     Dates: start: 20000101
  7. GLUCOPHAGE [Concomitant]
     Indication: DIABETES MELLITUS
     Dosage: DAILY DOSE: 2000 MILLIGRAM(S)
     Route: 048
     Dates: start: 20000101
  8. ASPIRIN [Concomitant]
     Indication: PROPHYLAXIS
     Dosage: DAILY DOSE: 81 MILLIGRAM(S)
     Route: 048
     Dates: start: 20020101

REACTIONS (1)
  - MYOCARDIAL ISCHAEMIA [None]
